FAERS Safety Report 7356003-0 (Version None)
Quarter: 2011Q1

REPORT INFORMATION
  Report Type: 
  Country: None (occurrence: None)
  Receive Date: 20110310
  Receipt Date: 20110310
  Transmission Date: 20110831
  Serious: Yes (Hospitalization)
  Sender: FDA-Public Use
  Company Number: None

PATIENT
  Sex: Male
  Weight: 76.8 kg

DRUGS (12)
  1. PEG-L-ASPARAGINASE (K-H) [Suspect]
     Dosage: 4875 UNIT
  2. VICODIN [Concomitant]
  3. CYTARABINE [Suspect]
     Dosage: 70 MG
  4. DAUNORUBICIN [Suspect]
     Dosage: 49 MG
  5. METHYLPREDNISOLONE [Suspect]
     Dosage: 120 MG
  6. LEXAPRO [Concomitant]
  7. LISINOPRIL [Concomitant]
  8. VINCRISTINE SULFATE [Suspect]
     Dosage: 2 MG
  9. METHOTREXATE [Suspect]
     Dosage: 15 MG INTRATHECAL CHEMO
     Route: 037
  10. ACYCLOVIR [Concomitant]
  11. BACTRIM [Concomitant]
  12. LORAZEPAM [Concomitant]

REACTIONS (5)
  - HEADACHE [None]
  - THINKING ABNORMAL [None]
  - APHASIA [None]
  - MUSCULOSKELETAL STIFFNESS [None]
  - THOUGHT BLOCKING [None]
